FAERS Safety Report 25441704 (Version 1)
Quarter: 2025Q2

REPORT INFORMATION
  Report Type: Report from Study
  Country: US (occurrence: US)
  Receive Date: 20250616
  Receipt Date: 20250616
  Transmission Date: 20250717
  Serious: Yes (Hospitalization, Other)
  Sender: ALNYLAM PHARMACEUTICALS
  Company Number: US-ALNYLAM PHARMACEUTICALS, INC.-ALN-2025-003698

PATIENT

DRUGS (1)
  1. AMVUTTRA [Suspect]
     Active Substance: VUTRISIRAN
     Indication: Hereditary neuropathic amyloidosis
     Route: 065
     Dates: start: 20230207, end: 20230207

REACTIONS (8)
  - Cardiac disorder [Unknown]
  - Dementia [Unknown]
  - Therapy interrupted [Unknown]
  - Therapy cessation [Unknown]
  - Gait inability [Unknown]
  - General physical health deterioration [Unknown]
  - Cognitive disorder [Unknown]
  - Muscle strength abnormal [Unknown]

NARRATIVE: CASE EVENT DATE: 20250424
